FAERS Safety Report 16711194 (Version 1)
Quarter: 2019Q3

REPORT INFORMATION
  Report Type: Report from Study
  Country: CO (occurrence: CO)
  Receive Date: 20190816
  Receipt Date: 20190816
  Transmission Date: 20191004
  Serious: Yes (Death, Other)
  Sender: FDA-Public Use
  Company Number: CO-BAYER-2019-049107

PATIENT
  Age: 80 Year
  Sex: Female

DRUGS (2)
  1. ADEMPAS [Suspect]
     Active Substance: RIOCIGUAT
     Indication: PULMONARY ARTERIAL HYPERTENSION
     Dosage: 1 MG, Q8HR
     Dates: start: 20190221
  2. ADEMPAS [Suspect]
     Active Substance: RIOCIGUAT
     Indication: PULMONARY ARTERIAL HYPERTENSION
     Dosage: 1.5 MG, Q8HR
     Route: 048
     Dates: start: 20190221, end: 20190522

REACTIONS (5)
  - Hypertension [None]
  - Senile dementia [Not Recovered/Not Resolved]
  - Death [Fatal]
  - Headache [Not Recovered/Not Resolved]
  - Incorrect dose administered [None]

NARRATIVE: CASE EVENT DATE: 2019
